FAERS Safety Report 23723893 (Version 1)
Quarter: 2024Q2

REPORT INFORMATION
  Report Type: Spontaneous
  Country: US (occurrence: None)
  Receive Date: 20240409
  Receipt Date: 20240409
  Transmission Date: 20240715
  Serious: Yes (Hospitalization)
  Sender: FDA-Public Use
  Company Number: None

PATIENT
  Age: 71 Year
  Sex: Male

DRUGS (18)
  1. NUPLAZID [Suspect]
     Active Substance: PIMAVANSERIN TARTRATE
     Indication: Parkinson^s disease
     Dosage: FREQUENCY : DAILY;?
     Route: 048
  2. GLIMEPIRIDE [Concomitant]
     Active Substance: GLIMEPIRIDE
  3. ATORVASTATIN [Concomitant]
     Active Substance: ATORVASTATIN
  4. SPIRONOLACTONE [Concomitant]
     Active Substance: SPIRONOLACTONE
  5. METFORMIN [Concomitant]
     Active Substance: METFORMIN HYDROCHLORIDE
  6. LOSARTAN [Concomitant]
     Active Substance: LOSARTAN
  7. SINEMET [Concomitant]
     Active Substance: CARBIDOPA\LEVODOPA
  8. EZETIMIBE [Concomitant]
     Active Substance: EZETIMIBE
  9. TAMSULOSIN [Concomitant]
     Active Substance: TAMSULOSIN
  10. ARIPIPRAZOLE [Concomitant]
     Active Substance: ARIPIPRAZOLE
  11. CLONAZEPAM [Concomitant]
     Active Substance: CLONAZEPAM
  12. SINEMET CR [Concomitant]
     Active Substance: CARBIDOPA\LEVODOPA
  13. VITAMIN D3 [Concomitant]
     Active Substance: CHOLECALCIFEROL
  14. ASPIRIN [Concomitant]
     Active Substance: ASPIRIN
  15. VENLAFAXINE HYDROCHLORIDE [Concomitant]
     Active Substance: VENLAFAXINE HYDROCHLORIDE
  16. ACYCLOVIR [Concomitant]
     Active Substance: ACYCLOVIR
  17. PREDNISONE [Concomitant]
     Active Substance: PREDNISONE
  18. BACTRIM [Concomitant]
     Active Substance: SULFAMETHOXAZOLE\TRIMETHOPRIM

REACTIONS (1)
  - Adverse drug reaction [None]

NARRATIVE: CASE EVENT DATE: 20240216
